FAERS Safety Report 4648252-7 (Version None)
Quarter: 2005Q2

REPORT INFORMATION
  Report Type: 
  Country: None (occurrence: None)
  Receive Date: 20050331
  Receipt Date: 20050209
  Transmission Date: 20051028
  Serious: No
  Sender: FDA-Public Use
  Company Number: 05P-163-0290074-00

PATIENT
  Age: 51 Year
  Sex: Female
  Weight: 111.5 kg

DRUGS (4)
  1. HUMIRA [Suspect]
     Indication: RHEUMATOID ARTHRITIS
     Dosage: 40 MG, 1 IN 2 WK, SUBCUTANEOUS
     Route: 058
     Dates: start: 20040701, end: 20041201
  2. CARISOPRODOL [Concomitant]
  3. IBUPROFEN [Concomitant]
  4. VICODIN [Concomitant]

REACTIONS (2)
  - INFLUENZA [None]
  - PNEUMONIA [None]
